FAERS Safety Report 8837510 (Version 1)
Quarter: 2012Q4

REPORT INFORMATION
  Report Type: 
  Country: DK (occurrence: DK)
  Receive Date: 20121012
  Receipt Date: 20121012
  Transmission Date: 20130627
  Serious: Yes (Hospitalization)
  Sender: FDA-Public Use
  Company Number: DK-MYLANLABS-2012S1020364

PATIENT
  Age: 62 Year
  Sex: Male

DRUGS (4)
  1. METFORMIN [Suspect]
     Indication: TYPE 2 DIABETES MELLITUS
     Dosage: 2000mg daily
     Route: 065
  2. GLIMEPIRIDE [Concomitant]
     Dosage: 3mg daily
     Route: 065
  3. HYDROCHLOROTHIAZIDE W/LOSARTAN [Concomitant]
     Route: 065
  4. PARACETAMOL [Concomitant]
     Route: 065

REACTIONS (5)
  - Lactic acidosis [Unknown]
  - Cardiac arrest [Unknown]
  - Oliguria [Not Recovered/Not Resolved]
  - Bradycardia [Unknown]
  - Respiratory arrest [Recovered/Resolved]
